FAERS Safety Report 24254637 (Version 1)
Quarter: 2024Q3

REPORT INFORMATION
  Report Type: Spontaneous
  Country: US (occurrence: US)
  Receive Date: 20240827
  Receipt Date: 20240827
  Transmission Date: 20241016
  Serious: No
  Sender: TARO
  Company Number: US-TARO PHARMACEUTICALS USA INC.-2023TAR01229

PATIENT

DRUGS (1)
  1. TERBINAFINE HYDROCHLORIDE [Suspect]
     Active Substance: TERBINAFINE HYDROCHLORIDE
     Indication: Tinea cruris
     Dosage: UNK, OD, TO AFFECTED AREA
     Route: 061
     Dates: start: 20231102

REACTIONS (2)
  - Drug ineffective [Unknown]
  - Off label use [Unknown]
